FAERS Safety Report 19161629 (Version 1)
Quarter: 2021Q2

REPORT INFORMATION
  Report Type: Spontaneous
  Country: US (occurrence: US)
  Receive Date: 20210420
  Receipt Date: 20210420
  Transmission Date: 20210717
  Serious: No
  Sender: FDA-Public Use
  Company Number: None

PATIENT
  Age: 65 Year
  Sex: Female
  Weight: 40.95 kg

DRUGS (6)
  1. VITAMIN B2 [Concomitant]
     Active Substance: RIBOFLAVIN
  2. LEVOTHYROXINE. [Concomitant]
     Active Substance: LEVOTHYROXINE
  3. CREON [Concomitant]
     Active Substance: PANCRELIPASE AMYLASE\PANCRELIPASE LIPASE\PANCRELIPASE PROTEASE
  4. VITAMIN B12 [Concomitant]
     Active Substance: CYANOCOBALAMIN
  5. CAPECITABINE. [Suspect]
     Active Substance: CAPECITABINE
     Indication: MALIGNANT ASCITES
     Dosage: ?          OTHER FREQUENCY:BID 14/21 DAYS;?
     Route: 048
     Dates: start: 20201224
  6. FOLIC ACID. [Concomitant]
     Active Substance: FOLIC ACID

REACTIONS (4)
  - Skin exfoliation [None]
  - Skin discolouration [None]
  - Peripheral swelling [None]
  - Pain in extremity [None]

NARRATIVE: CASE EVENT DATE: 20210420
